FAERS Safety Report 9846139 (Version 2)
Quarter: 2014Q1

REPORT INFORMATION
  Report Type: Spontaneous
  Country: TR (occurrence: TR)
  Receive Date: 20140127
  Receipt Date: 20140206
  Transmission Date: 20141002
  Serious: Yes (Life-Threatening, Hospitalization)
  Sender: FDA-Public Use
  Company Number: TR-ABBVIE-14P-161-1194437-00

PATIENT
  Age: 26 Year
  Sex: Female

DRUGS (1)
  1. TARKA FORTE [Suspect]
     Indication: PRODUCT USED FOR UNKNOWN INDICATION
     Dosage: 4.8 G OF VERAPAMIL AND 80 MG OF TRANDOLAPRIL

REACTIONS (7)
  - Pleural effusion [Unknown]
  - Non-cardiogenic pulmonary oedema [Unknown]
  - Toxicity to various agents [Unknown]
  - Atrioventricular block complete [Unknown]
  - Hypotension [Recovered/Resolved]
  - Bradycardia [Recovered/Resolved]
  - Dyspnoea [Unknown]
